FAERS Safety Report 5133729-0 (Version None)
Quarter: 2006Q4

REPORT INFORMATION
  Report Type: 
  Country: None (occurrence: None)
  Receive Date: 20061024
  Receipt Date: 20061023
  Transmission Date: 20070319
  Serious: Yes (Other)
  Sender: FDA-Public Use
  Company Number: US-GLAXOSMITHKLINE-A0624518A

PATIENT
  Age: 24 Year
  Sex: Male

DRUGS (1)
  1. DEBROX DROPS [Suspect]
     Indication: CERUMEN REMOVAL
     Route: 001

REACTIONS (1)
  - DEAFNESS [None]
